FAERS Safety Report 7445050-6 (Version None)
Quarter: 2011Q2

REPORT INFORMATION
  Report Type: 
  Country: None (occurrence: None)
  Receive Date: 20110427
  Receipt Date: 20110427
  Transmission Date: 20111010
  Serious: Yes (Death)
  Sender: FDA-Public Use
  Company Number: None

PATIENT
  Age: 83 Year
  Sex: Female
  Weight: 61.1 kg

DRUGS (10)
  1. BA/BICARB [Concomitant]
  2. METAROLOL [Concomitant]
  3. DECITABINE [Suspect]
  4. VANCOMYCIN [Concomitant]
  5. CEFDINIR [Concomitant]
  6. DECITABINE [Suspect]
  7. HYDREA [Concomitant]
  8. COLACE [Concomitant]
  9. DIGOXIN [Concomitant]
  10. FLUCONIZOLE [Concomitant]

REACTIONS (8)
  - RENAL FAILURE [None]
  - GENERAL PHYSICAL HEALTH DETERIORATION [None]
  - HYPOXIA [None]
  - THROMBOPHLEBITIS SUPERFICIAL [None]
  - PNEUMONIA [None]
  - CELLULITIS [None]
  - OSTEOARTHRITIS [None]
  - RESPIRATORY FAILURE [None]
